FAERS Safety Report 15719012 (Version 2)
Quarter: 2019Q2

REPORT INFORMATION
  Report Type: Spontaneous
  Country: US (occurrence: US)
  Receive Date: 20181213
  Receipt Date: 20190607
  Transmission Date: 20190711
  Serious: Yes (Life-Threatening, Other)
  Sender: FDA-Public Use
  Company Number: US-PFIZER INC-2018506387

PATIENT
  Sex: Female
  Weight: 3.27 kg

DRUGS (3)
  1. DEXTROSE. [Concomitant]
     Active Substance: DEXTROSE
     Dosage: UNK (5% DEXTROSE)
  2. ALPROSTADIL. [Suspect]
     Active Substance: ALPROSTADIL
     Indication: HEART DISEASE CONGENITAL
     Dosage: 250 UG, UNK (5 MCG/KG/MIN)
  3. ALPROSTADIL. [Suspect]
     Active Substance: ALPROSTADIL
     Indication: DIGEORGE^S SYNDROME

REACTIONS (6)
  - Product administration error [Unknown]
  - Infantile apnoea [Recovered/Resolved]
  - Neonatal hypoxia [Recovered/Resolved]
  - Hypotension [Recovered/Resolved]
  - Bradycardia neonatal [Recovered/Resolved]
  - Overdose [Unknown]
